FAERS Safety Report 25698691 (Version 1)
Quarter: 2025Q3

REPORT INFORMATION
  Report Type: Report from Study
  Country: US (occurrence: US)
  Receive Date: 20250819
  Receipt Date: 20250819
  Transmission Date: 20251021
  Serious: Yes (Hospitalization)
  Sender: TAKEDA
  Company Number: US-TAKEDA-2025TUS071756

PATIENT
  Age: 21 Year
  Sex: Female

DRUGS (2)
  1. VONICOG ALFA [Suspect]
     Active Substance: VONICOG ALFA
     Indication: Product used for unknown indication
  2. VONICOG ALFA [Suspect]
     Active Substance: VONICOG ALFA

REACTIONS (1)
  - Oropharyngeal pain [Unknown]

NARRATIVE: CASE EVENT DATE: 20250807
